FAERS Safety Report 10641830 (Version 4)
Quarter: 2015Q1

REPORT INFORMATION
  Report Type: Report from Study
  Country: FR (occurrence: FR)
  Receive Date: 20141209
  Receipt Date: 20150212
  Transmission Date: 20150720
  Serious: Yes (Life-Threatening)
  Sender: FDA-Public Use
  Company Number: FR-AMGEN-2014-2614

PATIENT
  Age: 41 Year
  Sex: Male

DRUGS (4)
  1. CARFILZOMIB [Suspect]
     Active Substance: CARFILZOMIB
     Indication: PLASMA CELL MYELOMA
     Dosage: 64 MG, PER CHEMO REGIM
     Route: 042
     Dates: start: 20140624
  2. LENALIDOMIDE [Concomitant]
     Active Substance: LENALIDOMIDE
     Dosage: UNK
     Route: 065
  3. LENALIDOMIDE [Concomitant]
     Active Substance: LENALIDOMIDE
     Indication: PLASMA CELL MYELOMA
     Dosage: 25 MG, PER CHEMO REGIM
     Route: 065
     Dates: start: 20140624
  4. DEXAMETHASONE. [Concomitant]
     Active Substance: DEXAMETHASONE
     Indication: PLASMA CELL MYELOMA
     Dosage: 20 MG, UNK
     Route: 065
     Dates: start: 20140624

REACTIONS (1)
  - Intracardiac thrombus [Recovered/Resolved]

NARRATIVE: CASE EVENT DATE: 20141124
